FAERS Safety Report 5518612-0 (Version None)
Quarter: 2007Q4

REPORT INFORMATION
  Report Type: 
  Country: None (occurrence: None)
  Receive Date: 20071115
  Receipt Date: 20071106
  Transmission Date: 20080405
  Serious: Yes (Life-Threatening, Other)
  Sender: FDA-Public Use
  Company Number: HR-PFIZER INC-2007093975

PATIENT
  Sex: Male

DRUGS (3)
  1. ZOLOFT [Suspect]
     Indication: POST-TRAUMATIC STRESS DISORDER
     Dosage: DAILY DOSE:100MG
     Route: 048
  2. ZOLPIDEM TARTRATE [Concomitant]
     Route: 048
  3. HELEX [Concomitant]
     Route: 048
     Dates: start: 20070108

REACTIONS (4)
  - DEPRESSION [None]
  - ERECTILE DYSFUNCTION [None]
  - SUICIDAL IDEATION [None]
  - SUICIDE ATTEMPT [None]
